FAERS Safety Report 6250620-7 (Version None)
Quarter: 2009Q2

REPORT INFORMATION
  Report Type: 
  Country: None (occurrence: None)
  Receive Date: 20090630
  Receipt Date: 20090622
  Transmission Date: 20091009
  Serious: Yes (Hospitalization)
  Sender: FDA-Public Use
  Company Number: GB-WYE-H09844909

PATIENT
  Sex: Male

DRUGS (22)
  1. RAPAMUNE [Suspect]
     Indication: PROPHYLAXIS AGAINST TRANSPLANT REJECTION
     Dosage: NOT PROVIDED
  2. MYCOPHENOLATE MOFETIL [Suspect]
     Indication: PROPHYLAXIS AGAINST TRANSPLANT REJECTION
     Route: 048
     Dates: start: 20040401
  3. TACROLIMUS [Suspect]
     Indication: PROPHYLAXIS AGAINST TRANSPLANT REJECTION
     Dosage: VARIABLE DOSE
     Route: 048
     Dates: start: 20040401
  4. PREDNISOLONE [Suspect]
     Indication: PROPHYLAXIS AGAINST TRANSPLANT REJECTION
     Dosage: VARIABLE DOSE
     Route: 048
     Dates: start: 20040402, end: 20070402
  5. CO-TRIMOXAZOLE [Concomitant]
     Dosage: NOT PROVIDED
     Dates: start: 20040402, end: 20041011
  6. ADALAT - SLOW RELEASE [Concomitant]
     Dosage: NOT PROVIDED
     Dates: start: 20040430
  7. AMLODIPINE BESYLATE [Concomitant]
     Dosage: NOT PROVIDED
     Dates: start: 20040401, end: 20040430
  8. AMOXICILLIN [Concomitant]
     Dosage: NOT PROVIDED
     Dates: start: 20040430, end: 20040710
  9. ATENOLOL [Concomitant]
     Dosage: NOT PROVIDED
     Dates: start: 20040514
  10. ATENOLOL [Concomitant]
     Dosage: NOT PROVIDED
     Dates: start: 20040714
  11. CEFALEXIN [Concomitant]
     Dosage: NOT PROVIDED
     Dates: start: 20040909, end: 20041208
  12. CIPROFLOXACIN [Concomitant]
     Dosage: NOT PROVIDED
     Dates: start: 20040514, end: 20040519
  13. CIPROFLOXACIN [Concomitant]
     Dosage: NOT PROVIDED
     Dates: start: 20050117
  14. FRUSEMIDE [Concomitant]
     Dosage: NOT PROVIDED
     Dates: start: 20040412
  15. DOXAZOSIN MESYLATE [Concomitant]
     Dosage: NOT PROVIDED
     Dates: start: 20040612
  16. LACTULOSE [Concomitant]
     Dosage: NOT PROVIDED
     Dates: start: 20040405, end: 20040408
  17. LOPERAMIDE HYDROCHLORIDE [Concomitant]
     Dosage: NOT PROVIDED
     Dates: start: 20040411, end: 20040419
  18. RANITIDINE [Concomitant]
     Dosage: NOT PROVIDED
     Dates: start: 20040401
  19. SENNA [Concomitant]
     Dosage: NOT PROVIDED
     Dates: start: 20040405
  20. ACETYLSALICYLIC ACID [Concomitant]
     Dosage: NOT PROVIDED
     Dates: start: 20040402, end: 20040906
  21. DACLIZUMAB [Suspect]
     Indication: PROPHYLAXIS AGAINST TRANSPLANT REJECTION
     Dosage: 170 MG
     Route: 042
     Dates: start: 20040401, end: 20040401
  22. DACLIZUMAB [Suspect]
     Route: 042
     Dates: start: 20040415, end: 20040528

REACTIONS (5)
  - BLADDER OBSTRUCTION [None]
  - ENTEROCOCCAL INFECTION [None]
  - LOWER RESPIRATORY TRACT INFECTION [None]
  - PYREXIA [None]
  - URINARY RETENTION [None]
